FAERS Safety Report 8363970-5 (Version None)
Quarter: 2012Q2

REPORT INFORMATION
  Report Type: 
  Country: None (occurrence: None)
  Receive Date: 20120516
  Receipt Date: 20120503
  Transmission Date: 20120825
  Serious: Yes (Other)
  Sender: FDA-Public Use
  Company Number: US-PFIZER INC-2012116788

PATIENT
  Age: 76 Year
  Sex: Male

DRUGS (1)
  1. AMIODARONE HCL [Suspect]
     Indication: TACHYARRHYTHMIA
     Dosage: DAILY

REACTIONS (1)
  - NEUROMYOPATHY [None]
